FAERS Safety Report 7006236-8 (Version None)
Quarter: 2010Q3

REPORT INFORMATION
  Report Type: 
  Country: None (occurrence: None)
  Receive Date: 20100921
  Receipt Date: 20100823
  Transmission Date: 20110219
  Serious: No
  Sender: FDA-Public Use
  Company Number: US-PFIZER INC-2010106783

PATIENT
  Sex: Female

DRUGS (1)
  1. SERTRALINE HYDROCHLORIDE [Suspect]
     Dosage: 100 MG, DAILY
     Route: 048
     Dates: start: 20100301

REACTIONS (3)
  - GASTROINTESTINAL DISORDER [None]
  - MALAISE [None]
  - NAUSEA [None]
